FAERS Safety Report 23097535 (Version 1)
Quarter: 2023Q4

REPORT INFORMATION
  Report Type: Spontaneous
  Country: US (occurrence: None)
  Receive Date: 20231023
  Receipt Date: 20231023
  Transmission Date: 20240109
  Serious: Yes (unspecified)
  Sender: FDA-Public Use
  Company Number: None

PATIENT
  Age: 33 Year
  Sex: Female
  Weight: 79 kg

DRUGS (7)
  1. EPCLUSA [Suspect]
     Active Substance: SOFOSBUVIR\VELPATASVIR
     Indication: Chronic hepatitis C
     Dosage: FREQUENCY : DAILY;?
     Route: 048
  2. divalproex DR 750mg po tid [Concomitant]
  3. prazosin 1mg po qhs [Concomitant]
  4. quetiapine 400mg po bid [Concomitant]
  5. trazodone 50mg po hs [Concomitant]
  6. clonazepam 1mg po tid [Concomitant]
  7. ibuprofen 800mg po tid prn mild pain [Concomitant]

REACTIONS (2)
  - Hepatitis C RNA positive [None]
  - Drug ineffective [None]

NARRATIVE: CASE EVENT DATE: 20211001
